APPROVED DRUG PRODUCT: LAMIVUDINE
Active Ingredient: LAMIVUDINE
Strength: 150MG
Dosage Form/Route: TABLET;ORAL
Application: A204528 | Product #001
Applicant: NATCO PHARMA LTD
Approved: Mar 4, 2016 | RLD: No | RS: No | Type: DISCN